FAERS Safety Report 7780218-0 (Version None)
Quarter: 2011Q3

REPORT INFORMATION
  Report Type: 
  Country: None (occurrence: None)
  Receive Date: 20110927
  Receipt Date: 20110920
  Transmission Date: 20111222
  Serious: Yes (Life-Threatening, Hospitalization)
  Sender: FDA-Public Use
  Company Number: FR-SANOFI-AVENTIS-2011SA042104

PATIENT
  Age: 69 Year
  Sex: Female
  Weight: 59 kg

DRUGS (6)
  1. CLASTOBAN [Concomitant]
     Indication: METASTASIS
     Route: 048
     Dates: start: 20090216, end: 20110601
  2. TAXOTERE [Suspect]
     Indication: BREAST CANCER
     Dates: start: 20110216, end: 20110511
  3. CRESTOR [Concomitant]
     Route: 048
     Dates: end: 20110528
  4. SOLU-MEDROL [Suspect]
     Indication: BREAST CANCER
     Route: 051
     Dates: start: 20110216, end: 20110511
  5. ZOFENIL [Concomitant]
     Indication: HYPERTENSION
     Route: 048
     Dates: end: 20110528
  6. ZOFRAN [Concomitant]
     Route: 051
     Dates: start: 20110216, end: 20110511

REACTIONS (4)
  - PANCREATITIS ACUTE [None]
  - ABDOMINAL PAIN [None]
  - NAUSEA [None]
  - VOMITING [None]
